FAERS Safety Report 15531073 (Version 4)
Quarter: 2018Q4

REPORT INFORMATION
  Report Type: Report from Study
  Country: BE (occurrence: BE)
  Receive Date: 20181019
  Receipt Date: 20181119
  Transmission Date: 20190205
  Serious: Yes (Hospitalization)
  Sender: FDA-Public Use
  Company Number: BE-TAKEDA-2018TUS030001

PATIENT
  Age: 15 Year
  Sex: Male
  Weight: 62.3 kg

DRUGS (8)
  1. KLEAN-PREP [Concomitant]
     Active Substance: ELECTROLYTES NOS\POLYETHYLENE GLYCOL 3350
     Dosage: UNK UNK, QD
     Route: 048
     Dates: start: 20180930, end: 20180930
  2. VEDOLIZUMAB [Suspect]
     Active Substance: VEDOLIZUMAB
     Indication: CROHN^S DISEASE
     Dosage: 300 MG, UNK
     Route: 042
     Dates: start: 20180626
  3. VENOFER [Concomitant]
     Active Substance: IRON SUCROSE
     Dosage: 45 MG, QD
     Route: 042
     Dates: start: 20180807, end: 20180807
  4. VENOFER [Concomitant]
     Active Substance: IRON SUCROSE
     Dosage: UNK, QD
     Route: 042
     Dates: start: 20181001, end: 20181001
  5. VENOFER [Concomitant]
     Active Substance: IRON SUCROSE
     Dosage: 60 MG, QD
     Route: 042
     Dates: start: 20180820, end: 20180820
  6. IMURAN [Concomitant]
     Active Substance: AZATHIOPRINE
     Indication: CROHN^S DISEASE
     Dosage: 150 MG, QD
     Route: 048
     Dates: start: 201802
  7. KLEAN-PREP [Concomitant]
     Active Substance: ELECTROLYTES NOS\POLYETHYLENE GLYCOL 3350
     Indication: BOWEL PREPARATION
     Dosage: UNK, QID
     Route: 048
     Dates: start: 20180624, end: 20180624
  8. VENOFER [Concomitant]
     Active Substance: IRON SUCROSE
     Indication: ANAEMIA
     Dosage: UNK UNK, QD
     Route: 042
     Dates: start: 20180807, end: 20180807

REACTIONS (1)
  - Crohn^s disease [Not Recovered/Not Resolved]

NARRATIVE: CASE EVENT DATE: 20181005
